FAERS Safety Report 13045661 (Version 1)
Quarter: 2016Q4

REPORT INFORMATION
  Report Type: Spontaneous
  Country: US (occurrence: US)
  Receive Date: 20161220
  Receipt Date: 20161220
  Transmission Date: 20170207
  Serious: Yes (Life-Threatening)
  Sender: FDA-Public Use
  Company Number: None

PATIENT
  Age: 62 Year
  Sex: Male
  Weight: 113.5 kg

DRUGS (2)
  1. ZIMBALTA [Concomitant]
  2. JANUVIA [Suspect]
     Active Substance: SITAGLIPTIN PHOSPHATE
     Indication: TYPE 2 DIABETES MELLITUS
     Dosage: 1 PILL PER DAY ONE DAILY MOUTH
     Route: 048
     Dates: start: 20120422, end: 20160902

REACTIONS (3)
  - Back pain [None]
  - Abdominal pain [None]
  - Fear [None]

NARRATIVE: CASE EVENT DATE: 20160501
